FAERS Safety Report 11394199 (Version 1)
Quarter: 2015Q3

REPORT INFORMATION
  Report Type: Spontaneous
  Country: US (occurrence: None)
  Receive Date: 20150817
  Receipt Date: 20150817
  Transmission Date: 20151125
  Serious: Yes (Other)
  Sender: FDA-Public Use
  Company Number: None

PATIENT
  Age: 28 Year
  Sex: Female
  Weight: 92.53 kg

DRUGS (4)
  1. TOPAMAX [Concomitant]
     Active Substance: TOPIRAMATE
  2. SAPHRIS [Concomitant]
     Active Substance: ASENAPINE MALEATE
  3. PRENATAL FISH OIL [Concomitant]
  4. SAPHRIS [Suspect]
     Active Substance: ASENAPINE MALEATE
     Indication: BIPOLAR DISORDER
     Dosage: TAKEN UNDER THE GTONGUW
     Dates: start: 20150814, end: 20150814

REACTIONS (4)
  - Jaw disorder [None]
  - Dizziness [None]
  - Loss of consciousness [None]
  - Injury [None]

NARRATIVE: CASE EVENT DATE: 20150814
